FAERS Safety Report 10884336 (Version 1)
Quarter: 2015Q1

REPORT INFORMATION
  Report Type: Spontaneous
  Country: NL (occurrence: None)
  Receive Date: 20150227
  Receipt Date: 20150227
  Transmission Date: 20150721
  Serious: Yes (Hospitalization, Other)
  Sender: FDA-Public Use
  Company Number: NL-2015VAL000172

PATIENT
  Age: 49 Year
  Sex: Male

DRUGS (18)
  1. METOPROLOL TARTRATE (METOPROLOL TARTRATE) UNKNOWN [Suspect]
     Active Substance: METOPROLOL TARTRATE
     Indication: HYPERTENSION
  2. HYDROCHLOROTHIAZIDE (HYDROCHLOROTHIAZIDE) [Suspect]
     Active Substance: HYDROCHLOROTHIAZIDE
     Indication: HYPERTENSION
  3. SIMVASTATIN. [Concomitant]
     Active Substance: SIMVASTATIN
  4. DIPYRIDAMOLE. [Concomitant]
     Active Substance: DIPYRIDAMOLE
  5. RISPERIDONE. [Concomitant]
     Active Substance: RISPERIDONE
  6. BARNIDIPINE [Concomitant]
     Active Substance: BARNIDIPINE
  7. CARBASALATE CALCIUM [Concomitant]
     Active Substance: CARBASALATE
  8. HALOPERIDOL. [Concomitant]
     Active Substance: HALOPERIDOL
  9. AMLODIPINE [Concomitant]
     Active Substance: AMLODIPINE BESYLATE
  10. QUETIAPINE [Concomitant]
     Active Substance: QUETIAPINE
  11. OXAZEPAM. [Concomitant]
     Active Substance: OXAZEPAM
  12. TEMAZEPAM. [Concomitant]
     Active Substance: TEMAZEPAM
  13. VITAMIN B12 [Concomitant]
     Active Substance: CYANOCOBALAMIN
  14. ENALAPRIL [Concomitant]
     Active Substance: ENALAPRIL
  15. FOLIC ACID. [Concomitant]
     Active Substance: FOLIC ACID
  16. CLOZAPINE (CLOZAPINE) [Suspect]
     Active Substance: CLOZAPINE
     Indication: SCHIZOPHRENIA, PARANOID TYPE
     Dates: start: 1999, end: 2008
  17. ESOMPERAZOLE [Concomitant]
  18. ANTHISTAMINES [Concomitant]

REACTIONS (11)
  - Hypertensive crisis [None]
  - Hypersensitivity [None]
  - Periorbital oedema [None]
  - Drug effect decreased [None]
  - Renal failure [None]
  - Tachycardia [None]
  - Angioedema [None]
  - Lacunar infarction [None]
  - Left ventricular hypertrophy [None]
  - Psychotic disorder [None]
  - Tongue oedema [None]

NARRATIVE: CASE EVENT DATE: 2005
